FAERS Safety Report 25175323 (Version 1)
Quarter: 2025Q2

REPORT INFORMATION
  Report Type: Spontaneous
  Country: US (occurrence: US)
  Receive Date: 20250408
  Receipt Date: 20250408
  Transmission Date: 20250716
  Serious: Yes (Death, Other)
  Sender: PURDUE
  Company Number: US-PURDUE PHARMA-USA-2025-0316625

PATIENT
  Age: 50 Year
  Sex: Male

DRUGS (1)
  1. OXYCONTIN [Suspect]
     Active Substance: OXYCODONE HYDROCHLORIDE
     Indication: Back injury
     Route: 048

REACTIONS (7)
  - Cardiac failure [Fatal]
  - Cardiomegaly [Fatal]
  - Oedema [Fatal]
  - Sleep apnoea syndrome [Fatal]
  - Diabetes mellitus [Fatal]
  - Depression [Fatal]
  - Adverse drug reaction [Fatal]
